FAERS Safety Report 8763648 (Version 2)
Quarter: 2012Q4

REPORT INFORMATION
  Report Type: Report from Study
  Country: DE (occurrence: DE)
  Receive Date: 20120828
  Receipt Date: 20120913
  Transmission Date: 20130627
  Serious: Yes (Death, Hospitalization)
  Sender: FDA-Public Use
  Company Number: DE-VERTEX PHARMACEUTICAL INC.-2012-019810

PATIENT
  Age: 60 Year
  Sex: Male

DRUGS (5)
  1. VX-950 [Suspect]
     Indication: HEPATITIS C
     Dosage: 2250 mg, qd
     Route: 048
     Dates: start: 20120704, end: 20120814
  2. PEG-INTERFERON ALFA 2A [Suspect]
     Indication: HEPATITIS C
     Dosage: 120 ?g, weekly
     Route: 058
     Dates: start: 20120607, end: 20120813
  3. REBETOL [Suspect]
     Indication: HEPATITIS C
     Dosage: 1200 mg, qd
     Route: 048
     Dates: start: 20120607, end: 20120814
  4. REBETOL [Suspect]
     Dosage: Dosage Form: Unspecified
     Route: 048
     Dates: start: 20120607, end: 20120814
  5. REVOLADE [Concomitant]
     Dosage: UNK
     Route: 065

REACTIONS (10)
  - Multi-organ failure [Fatal]
  - Sepsis [Fatal]
  - Gastroenteritis [Not Recovered/Not Resolved]
  - Colitis [Not Recovered/Not Resolved]
  - Pancytopenia [Not Recovered/Not Resolved]
  - Hepatic failure [None]
  - Renal failure [None]
  - Respiratory failure [None]
  - Ventricular tachycardia [None]
  - Septic shock [None]
